FAERS Safety Report 11183262 (Version 1)
Quarter: 2015Q2

REPORT INFORMATION
  Report Type: Spontaneous
  Country: JP (occurrence: JP)
  Receive Date: 20150611
  Receipt Date: 20150611
  Transmission Date: 20150821
  Serious: Yes (Other)
  Sender: FDA-Public Use
  Company Number: PHHY2015JP067962

PATIENT
  Age: 70 Year
  Sex: Male

DRUGS (1)
  1. BETAMETHASONE [Suspect]
     Active Substance: BETAMETHASONE
     Indication: CONJUNCTIVITIS ALLERGIC
     Route: 061

REACTIONS (2)
  - Blindness [Recovered/Resolved]
  - Glaucoma [Recovered/Resolved]
